FAERS Safety Report 20862029 (Version 1)
Quarter: 2022Q2

REPORT INFORMATION
  Report Type: Spontaneous
  Country: US (occurrence: US)
  Receive Date: 20220523
  Receipt Date: 20220523
  Transmission Date: 20220720
  Serious: No
  Sender: FDA-Public Use
  Company Number: US-PFIZER INC-202200722397

PATIENT
  Age: 76 Year
  Sex: Female

DRUGS (2)
  1. PANTOPRAZOLE [Suspect]
     Active Substance: PANTOPRAZOLE
     Dosage: UNK
  2. ORENITRAM [Suspect]
     Active Substance: TREPROSTINIL
     Indication: Pulmonary arterial hypertension
     Dosage: 3 MG, 3X/DAY
     Route: 048
     Dates: start: 20220406

REACTIONS (2)
  - Abdominal pain [Unknown]
  - Headache [Unknown]
